FAERS Safety Report 8385942-7 (Version None)
Quarter: 2012Q2

REPORT INFORMATION
  Report Type: 
  Country: None (occurrence: None)
  Receive Date: 20120525
  Receipt Date: 20120514
  Transmission Date: 20120825
  Serious: Yes (Other)
  Sender: FDA-Public Use
  Company Number: BR-JNJFOC-20120514035

PATIENT
  Sex: Male
  Weight: 100 kg

DRUGS (3)
  1. REMICADE [Suspect]
     Indication: PSORIASIS
     Route: 042
     Dates: start: 20070101
  2. TENORETIC 100 [Concomitant]
     Indication: HYPERTENSION
     Route: 065
     Dates: start: 20100101
  3. ALL OTHER THERAPEUTIC PRODUCTS [Concomitant]
     Indication: HYPERTENSION
     Route: 065
     Dates: start: 20100101

REACTIONS (2)
  - DRUG INEFFECTIVE [None]
  - DIABETES MELLITUS [None]
